FAERS Safety Report 13748383 (Version 3)
Quarter: 2017Q3

REPORT INFORMATION
  Report Type: Spontaneous
  Country: US (occurrence: US)
  Receive Date: 20170713
  Receipt Date: 20170912
  Transmission Date: 20171127
  Serious: Yes (Death)
  Sender: FDA-Public Use
  Company Number: US-PFIZER INC-2017303387

PATIENT
  Age: 85 Year
  Sex: Female
  Weight: 63.49 kg

DRUGS (2)
  1. IBRANCE [Suspect]
     Active Substance: PALBOCICLIB
     Indication: BREAST CANCER METASTATIC
     Dosage: 100 MG, CYCLIC (DAYS 1-21 Q 28 DAYS)
     Route: 048
     Dates: start: 20170622
  2. IBRANCE [Suspect]
     Active Substance: PALBOCICLIB
     Dosage: 75 MG, CYCLIC (DAILY 21/28 DAYS)
     Route: 048

REACTIONS (4)
  - Asthenia [Unknown]
  - Full blood count decreased [Unknown]
  - Death [Fatal]
  - Lethargy [Unknown]

NARRATIVE: CASE EVENT DATE: 20170831
